FAERS Safety Report 13380057 (Version 1)
Quarter: 2017Q1

REPORT INFORMATION
  Report Type: Spontaneous
  Country: US (occurrence: US)
  Receive Date: 20170328
  Receipt Date: 20170328
  Transmission Date: 20170429
  Serious: No
  Sender: FDA-Public Use
  Company Number: US-ELI_LILLY_AND_COMPANY-US201703010069

PATIENT
  Age: 37 Year
  Sex: Female

DRUGS (7)
  1. HUMALOG [Suspect]
     Active Substance: INSULIN LISPRO
     Indication: DIABETES MELLITUS
     Dosage: 2 U, QD WITH DINNER
     Route: 058
     Dates: start: 20170302, end: 20170322
  2. HUMALOG [Suspect]
     Active Substance: INSULIN LISPRO
     Dosage: 4 U, QD WITH DINNER
     Route: 058
     Dates: start: 20170309, end: 20170322
  3. HUMALOG [Suspect]
     Active Substance: INSULIN LISPRO
     Dosage: 6 U, QD WITH DINNER
     Route: 058
     Dates: start: 20170316, end: 20170322
  4. LANTUS [Concomitant]
     Active Substance: INSULIN GLARGINE
  5. METFORMIN [Concomitant]
     Active Substance: METFORMIN HYDROCHLORIDE
  6. LISINOPRIL. [Concomitant]
     Active Substance: LISINOPRIL
  7. GLUCOPHAGE [Concomitant]
     Active Substance: METFORMIN HYDROCHLORIDE

REACTIONS (9)
  - Fatigue [Unknown]
  - Extrasystoles [Unknown]
  - Chest discomfort [Unknown]
  - Lethargy [Unknown]
  - Pallor [Unknown]
  - Palpitations [Not Recovered/Not Resolved]
  - Dizziness [Unknown]
  - Asthenia [Unknown]
  - ECG P wave inverted [Unknown]

NARRATIVE: CASE EVENT DATE: 20170316
